FAERS Safety Report 20934428 (Version 1)
Quarter: 2022Q2

REPORT INFORMATION
  Report Type: Spontaneous
  Country: US (occurrence: US)
  Receive Date: 20220608
  Receipt Date: 20220608
  Transmission Date: 20220721
  Serious: Yes (Hospitalization)
  Sender: FDA-Public Use
  Company Number: US-BAYER-2022A079015

PATIENT
  Age: 52 Year
  Sex: Female

DRUGS (1)
  1. KERENDIA [Suspect]
     Active Substance: FINERENONE

REACTIONS (2)
  - Dehydration [None]
  - Muscle spasms [None]

NARRATIVE: CASE EVENT DATE: 20220430
